FAERS Safety Report 6440260-9 (Version None)
Quarter: 2009Q4

REPORT INFORMATION
  Report Type: 
  Country: None (occurrence: None)
  Receive Date: 20091113
  Receipt Date: 20091102
  Transmission Date: 20100525
  Serious: No
  Sender: FDA-Public Use
  Company Number: B0602338A

PATIENT
  Age: 30 Year
  Sex: Female

DRUGS (1)
  1. RELENZA [Suspect]
     Indication: DRUG USE FOR UNKNOWN INDICATION
     Dosage: 4PUFF PER DAY
     Route: 065
     Dates: start: 20091102

REACTIONS (2)
  - NO ADVERSE EVENT [None]
  - OVERDOSE [None]
